FAERS Safety Report 6681985-X (Version None)
Quarter: 2010Q2

REPORT INFORMATION
  Report Type: 
  Country: None (occurrence: None)
  Receive Date: 20100414
  Receipt Date: 20100414
  Transmission Date: 20101027
  Serious: Yes (Disabling)
  Sender: FDA-Public Use
  Company Number: None

PATIENT
  Age: 76 Year
  Sex: Female
  Weight: 58.9676 kg

DRUGS (2)
  1. FLUTICASONE PROPIONATE [Suspect]
     Indication: VIRAL INFECTION
     Dosage: 2 SPRAYS IN EACH NOSTRIL ONCE DAILY
     Dates: start: 20100311, end: 20100313
  2. FLUTICASONE PROPIONATE [Suspect]
     Indication: VIRAL INFECTION
     Dosage: 2 SPRAYS IN EACH NOSTRIL ONCE DAILY
     Dates: start: 20091201

REACTIONS (2)
  - AGEUSIA [None]
  - ANOSMIA [None]
